FAERS Safety Report 10020827 (Version 3)
Quarter: 2014Q4

REPORT INFORMATION
  Report Type: Spontaneous
  Country: JP (occurrence: None)
  Receive Date: 20131203
  Receipt Date: 20141112
  Transmission Date: 20150528
  Serious: Yes (Life-Threatening)
  Sender: FDA-Public Use
  Company Number: JP-20130096

PATIENT
  Age: 5 Day
  Sex: Male

DRUGS (1)
  1. LIPIODOL ULTRA FLUID [Suspect]
     Active Substance: ETHIODIZED OIL
     Indication: FOETAL EXPOSURE TIMING UNSPECIFIED
     Route: 064
     Dates: start: 20110913

REACTIONS (6)
  - Low birth weight baby [None]
  - Maternal drugs affecting foetus [None]
  - Maternal exposure before pregnancy [None]
  - Hypothyroidism [None]
  - Hyperthyroidism [None]
  - Premature baby [None]

NARRATIVE: CASE EVENT DATE: 20120904
